FAERS Safety Report 9235400 (Version 2)
Quarter: 2013Q3

REPORT INFORMATION
  Report Type: Spontaneous
  Country: US (occurrence: US)
  Receive Date: 20130417
  Receipt Date: 20130815
  Transmission Date: 20140515
  Serious: No
  Sender: FDA-Public Use
  Company Number: US-009507513-1304USA006565

PATIENT
  Age: 30 Year
  Sex: Female
  Weight: 95.69 kg

DRUGS (2)
  1. IMPLANON [Suspect]
     Dosage: 1 ROD, UNK, LEFT ARM
     Route: 059
     Dates: start: 20111229, end: 20130412
  2. IMPLANON [Suspect]
     Dosage: 1 ROD, UNK
     Route: 059
     Dates: start: 20130412

REACTIONS (3)
  - Device breakage [Recovered/Resolved]
  - No adverse event [Unknown]
  - Medical device complication [Recovered/Resolved]
